FAERS Safety Report 5885062-7 (Version None)
Quarter: 2008Q3

REPORT INFORMATION
  Report Type: 
  Country: None (occurrence: None)
  Receive Date: 20080915
  Receipt Date: 20080915
  Transmission Date: 20090109
  Serious: No
  Sender: FDA-Public Use
  Company Number: None

PATIENT
  Age: 32 Year
  Sex: Female
  Weight: 65.7716 kg

DRUGS (2)
  1. LEXAPRO [Suspect]
     Indication: DEPRESSION
     Dosage: 10MG  1 DAILY PO
     Route: 048
     Dates: start: 20080830, end: 20080912
  2. WELLBUTRIN [Suspect]
     Indication: DEPRESSION
     Dosage: 200MG 2 DAILY PO
     Route: 048
     Dates: start: 20080830, end: 20080912

REACTIONS (6)
  - ABNORMAL BEHAVIOUR [None]
  - DIARRHOEA [None]
  - MENTAL DISORDER [None]
  - PHARMACEUTICAL PRODUCT COMPLAINT [None]
  - PHARMACEUTICAL PRODUCT COUNTERFEIT [None]
  - RASH PRURITIC [None]
